FAERS Safety Report 10880326 (Version 2)
Quarter: 2015Q2

REPORT INFORMATION
  Report Type: Report from Study
  Country: US (occurrence: US)
  Receive Date: 20150302
  Receipt Date: 20150430
  Transmission Date: 20150821
  Serious: Yes (Other)
  Sender: FDA-Public Use
  Company Number: PHEH2014US023339

PATIENT
  Sex: Female
  Weight: 82.54 kg

DRUGS (1)
  1. GLEEVEC [Suspect]
     Active Substance: IMATINIB MESYLATE
     Indication: MALIGNANT MELANOMA
     Dosage: 400 MG, QD
     Route: 048

REACTIONS (15)
  - Metastatic malignant melanoma [Unknown]
  - Gastrointestinal disorder [Unknown]
  - Abdominal pain upper [Unknown]
  - Abdominal distension [Unknown]
  - Constipation [Not Recovered/Not Resolved]
  - Abnormal faeces [Unknown]
  - Large intestinal stenosis [Unknown]
  - Diverticulitis [Unknown]
  - Vomiting [Unknown]
  - Product quality issue [Unknown]
  - Product use issue [Unknown]
  - Melanoma recurrent [Unknown]
  - Headache [Unknown]
  - Abdominal discomfort [Unknown]
  - Back pain [Unknown]
